FAERS Safety Report 21968242 (Version 1)
Quarter: 2023Q1

REPORT INFORMATION
  Report Type: Spontaneous
  Country: US (occurrence: None)
  Receive Date: 20230207
  Receipt Date: 20230207
  Transmission Date: 20230418
  Serious: Yes (Hospitalization)
  Sender: FDA-Public Use
  Company Number: None

PATIENT
  Sex: Female

DRUGS (2)
  1. DALFAMPRIDINE [Suspect]
     Active Substance: DALFAMPRIDINE
     Indication: Multiple sclerosis
     Dosage: 10 MG TWICE DAILY ORALLY
     Route: 048
     Dates: start: 20200317
  2. GLATIRAMER ACETATE [Suspect]
     Active Substance: GLATIRAMER ACETATE
     Indication: Multiple sclerosis
     Dosage: 40 MG THREE TIMES WEEKLY SUBCUANEOUSLY?
     Route: 058
     Dates: start: 20220201

REACTIONS (5)
  - Kidney infection [None]
  - Urinary tract infection [None]
  - Therapy interrupted [None]
  - Insurance issue [None]
  - Mobility decreased [None]
